FAERS Safety Report 10157757 (Version 2)
Quarter: 2014Q2

REPORT INFORMATION
  Report Type: Report from Study
  Country: US (occurrence: US)
  Receive Date: 20140507
  Receipt Date: 20140507
  Transmission Date: 20141212
  Serious: Yes (Hospitalization)
  Sender: FDA-Public Use
  Company Number: US-ACTELION-A-NJ2014-95910

PATIENT
  Age: 76 Year
  Sex: Male

DRUGS (1)
  1. MACITENTAN [Suspect]
     Indication: PULMONARY HYPERTENSION
     Dosage: 10 MG, QD
     Route: 048
     Dates: start: 20140122, end: 20140228

REACTIONS (4)
  - Pulmonary hypertension [Recovering/Resolving]
  - Fluid retention [Recovering/Resolving]
  - Right ventricular failure [Recovering/Resolving]
  - Nasal congestion [Recovering/Resolving]
